FAERS Safety Report 4881872-3 (Version None)
Quarter: 2006Q1

REPORT INFORMATION
  Report Type: 
  Country: None (occurrence: None)
  Receive Date: 20060112
  Receipt Date: 20060112
  Transmission Date: 20060701
  Serious: Yes (Hospitalization)
  Sender: FDA-Public Use
  Company Number: None

PATIENT
  Age: 63 Year
  Sex: Male
  Weight: 101.1521 kg

DRUGS (9)
  1. DOCETAXEL [Suspect]
     Indication: PROSTATE CANCER
     Dosage: 65 MG/M2 Q 21 DAYS
     Dates: start: 20051116, end: 20051228
  2. KETOCONAZOLE [Suspect]
     Indication: PROSTATE CANCER
     Dosage: 400 MG TID
     Dates: start: 20051116, end: 20060108
  3. TEMAZEPAM [Concomitant]
  4. MULTI-VITAMIN [Concomitant]
  5. HYDROCORTISONE [Concomitant]
  6. CLOPIDOGRED [Concomitant]
  7. ATENOLOL [Concomitant]
  8. ASPIRIN [Concomitant]
  9. PROCHLORPERAZINE [Concomitant]

REACTIONS (7)
  - DEPRESSION [None]
  - DYSPHONIA [None]
  - FATIGUE [None]
  - MALAISE [None]
  - PRODUCTIVE COUGH [None]
  - SPUTUM DISCOLOURED [None]
  - UPPER RESPIRATORY TRACT INFECTION [None]
